FAERS Safety Report 26139875 (Version 1)
Quarter: 2025Q4

REPORT INFORMATION
  Report Type: Spontaneous
  Country: UA (occurrence: UA)
  Receive Date: 20251210
  Receipt Date: 20251210
  Transmission Date: 20260118
  Serious: Yes (Other)
  Sender: MYLAN
  Company Number: UA-MYLANLABS-2025M1104326

PATIENT
  Age: 54 Year
  Sex: Male

DRUGS (4)
  1. PREGABALIN [Suspect]
     Active Substance: PREGABALIN
     Indication: Dystonia
     Dosage: 75 MILLIGRAM, QD (75MG PER NIGHT)
  2. BACLOFEN [Suspect]
     Active Substance: BACLOFEN
     Indication: Dystonia
     Dosage: 30 MILLIGRAM, QD
  3. AMANTADINE [Suspect]
     Active Substance: AMANTADINE
     Indication: Dystonia
     Dosage: 200 MILLIGRAM, QD
  4. PRAMIPEXOLE [Suspect]
     Active Substance: PRAMIPEXOLE
     Indication: Dystonia
     Dosage: 1.5 MILLIGRAM, QD

REACTIONS (2)
  - Drug ineffective for unapproved indication [Unknown]
  - Product prescribing issue [Unknown]
